FAERS Safety Report 10740474 (Version 1)
Quarter: 2015Q1

REPORT INFORMATION
  Report Type: Spontaneous
  Country: US (occurrence: US)
  Receive Date: 20150127
  Receipt Date: 20150127
  Transmission Date: 20150721
  Serious: Yes (Other)
  Sender: FDA-Public Use
  Company Number: US-BEH-2011027505

PATIENT
  Age: 12 Year
  Sex: Female
  Weight: 38 kg

DRUGS (2)
  1. HIZENTRA [Suspect]
     Active Substance: HUMAN IMMUNOGLOBULIN G
     Indication: SELECTIVE IGG SUBCLASS DEFICIENCY
     Dosage: 9 G (45 ML) IN 2-3 SITES OVER 1-2 HOURS
     Route: 058
     Dates: start: 20110125, end: 20110125
  2. HIZENTRA [Suspect]
     Active Substance: HUMAN IMMUNOGLOBULIN G
     Indication: HYPOGAMMAGLOBULINAEMIA
     Dosage: 9 G (45 ML) IN 2-3 SITES OVER 1-2 HOURS
     Route: 058
     Dates: start: 20110125, end: 20110125

REACTIONS (4)
  - Infusion site infection [Recovered/Resolved]
  - Infusion site nodule [Recovered/Resolved with Sequelae]
  - Infusion site inflammation [Recovered/Resolved]
  - Infusion site pain [Recovered/Resolved]

NARRATIVE: CASE EVENT DATE: 20110125
